FAERS Safety Report 14032573 (Version 2)
Quarter: 2017Q4

REPORT INFORMATION
  Report Type: Spontaneous
  Country: IT (occurrence: IT)
  Receive Date: 20171003
  Receipt Date: 20171026
  Transmission Date: 20180321
  Serious: Yes (Hospitalization)
  Sender: FDA-Public Use
  Company Number: IT-SUN PHARMACEUTICAL INDUSTRIES LTD-2017RR-151033

PATIENT
  Age: 68 Year
  Sex: Female

DRUGS (11)
  1. ATORVASTATIN [Suspect]
     Active Substance: ATORVASTATIN
     Indication: DYSLIPIDAEMIA
     Dosage: 80 MG DAILY
     Route: 048
     Dates: start: 20170212, end: 20170528
  2. DIBASE 10.000 UI/ML [Concomitant]
     Indication: OSTEOPOROSIS
     Dosage: 7 GTT
     Route: 048
  3. BRILIQUE 90 MG [Interacting]
     Active Substance: TICAGRELOR
     Indication: ISCHAEMIC HEART DISEASE PROPHYLAXIS
     Dosage: 180 MG DAILY
     Route: 048
     Dates: start: 20170212, end: 20170622
  4. VALPRESSION 80 MG [Concomitant]
     Indication: HYPERTENSION
     Dosage: 80 MG
     Route: 048
  5. PANTOPRAZOLE [Concomitant]
     Active Substance: PANTOPRAZOLE
     Indication: PRODUCT USED FOR UNKNOWN INDICATION
     Dosage: 40 MG
     Route: 048
  6. BISOPROLOL FUMARATE. [Concomitant]
     Active Substance: BISOPROLOL FUMARATE
     Indication: HYPERTENSION
     Dosage: 2 DF
     Route: 048
  7. EUTIROX 100 MCG [Concomitant]
     Active Substance: LEVOTHYROXINE SODIUM
     Indication: HYPOTHYROIDISM
     Dosage: 1 DF
     Route: 048
  8. LASIX [Concomitant]
     Active Substance: FUROSEMIDE
     Indication: PRODUCT USED FOR UNKNOWN INDICATION
     Dosage: 2 DF
     Route: 048
  9. CLASTEON 200 MG/4 ML [Concomitant]
     Indication: OSTEOPOROSIS
     Dosage: UNK
     Route: 065
  10. VALPRESSION 80 MG [Concomitant]
     Dosage: 80 MG
     Route: 048
  11. CARDIOASPIRIN 100 MG [Concomitant]
     Active Substance: ASPIRIN
     Indication: ISCHAEMIC HEART DISEASE PROPHYLAXIS
     Dosage: 1 G
     Route: 048
     Dates: start: 20170212, end: 20170622

REACTIONS (6)
  - Myalgia [Recovering/Resolving]
  - Nausea [Recovering/Resolving]
  - Rhabdomyolysis [Recovering/Resolving]
  - Asthenia [Recovering/Resolving]
  - Pruritus [Recovering/Resolving]
  - Hepatitis acute [Recovering/Resolving]

NARRATIVE: CASE EVENT DATE: 20170328
